FAERS Safety Report 6545202-3 (Version None)
Quarter: 2010Q1

REPORT INFORMATION
  Report Type: 
  Country: None (occurrence: None)
  Receive Date: 20100121
  Receipt Date: 20090507
  Transmission Date: 20100710
  Serious: No
  Sender: FDA-Public Use
  Company Number: US-KINGPHARMUSA00001-K200900560

PATIENT
  Sex: Female

DRUGS (1)
  1. EPIPEN [Suspect]
     Dosage: UNK

REACTIONS (1)
  - REACTION TO PRESERVATIVES [None]
